FAERS Safety Report 14628220 (Version 1)
Quarter: 2018Q1

REPORT INFORMATION
  Report Type: Spontaneous
  Country: US (occurrence: US)
  Receive Date: 20180312
  Receipt Date: 20180312
  Transmission Date: 20180509
  Serious: No
  Sender: FDA-Public Use
  Company Number: US-ALLERGAN-1728587US

PATIENT
  Sex: Female

DRUGS (2)
  1. ESTRACE [Suspect]
     Active Substance: ESTRADIOL
     Dosage: 1 G, THREE TIMES WEEKLY
     Route: 061
     Dates: start: 2016
  2. ESTRACE [Suspect]
     Active Substance: ESTRADIOL
     Indication: VULVOVAGINAL DRYNESS
     Dosage: UNK, DAILY
     Route: 061
     Dates: start: 201605, end: 2016

REACTIONS (2)
  - Product physical consistency issue [Unknown]
  - Malabsorption from application site [Not Recovered/Not Resolved]

NARRATIVE: CASE EVENT DATE: 201605
